FAERS Safety Report 15841767 (Version 1)
Quarter: 2019Q1

REPORT INFORMATION
  Report Type: Spontaneous
  Country: IT (occurrence: IT)
  Receive Date: 20190118
  Receipt Date: 20190118
  Transmission Date: 20190417
  Serious: Yes (Hospitalization)
  Sender: FDA-Public Use
  Company Number: IT-TEVA-2019-IT-100011

PATIENT
  Age: 17 Year
  Sex: Female

DRUGS (2)
  1. QUETIAPINA TEVA 100 MG COMPRESSE RIVESTITE CON FILM [Suspect]
     Active Substance: QUETIAPINE
     Route: 048
     Dates: start: 20181112, end: 20181112
  2. LAMOTRIGINE. [Suspect]
     Active Substance: LAMOTRIGINE
     Route: 048
     Dates: start: 20181112, end: 20181112

REACTIONS (2)
  - Tremor [Recovering/Resolving]
  - Swollen tongue [Recovering/Resolving]

NARRATIVE: CASE EVENT DATE: 20181112
